FAERS Safety Report 19873290 (Version 1)
Quarter: 2021Q3

REPORT INFORMATION
  Report Type: Spontaneous
  Country: BG (occurrence: BG)
  Receive Date: 20210922
  Receipt Date: 20210922
  Transmission Date: 20211014
  Serious: Yes (Hospitalization)
  Sender: FDA-Public Use
  Company Number: NVSC2021BG211923

PATIENT
  Age: 617 Month
  Sex: Female

DRUGS (27)
  1. CYCLO 3 FORT [Concomitant]
     Active Substance: ASCORBIC ACID\HESPERIDIN METHYLCHALCONE\RUSCUS ACULEATUS ROOT
     Indication: DEEP VEIN THROMBOSIS
  2. XARELTO [Concomitant]
     Active Substance: RIVAROXABAN
     Indication: DEEP VEIN THROMBOSIS
  3. CARBOPLATIN. [Suspect]
     Active Substance: CARBOPLATIN
     Indication: OVARIAN CANCER
     Dosage: 583 MG,1 TOTAL
     Route: 042
     Dates: start: 20210419, end: 20210419
  4. PACLITAXEL. [Suspect]
     Active Substance: PACLITAXEL
     Dosage: 350 MG, TIW
     Route: 042
     Dates: start: 20210419, end: 20210419
  5. PACLITAXEL. [Suspect]
     Active Substance: PACLITAXEL
     Dosage: 350 MG, TIW
     Route: 042
     Dates: start: 20210531
  6. ARETA [Concomitant]
     Indication: HYPERTENSION
     Dosage: 10 MG, QD
     Route: 048
     Dates: start: 201604
  7. DOXIUM [Concomitant]
     Active Substance: CALCIUM DOBESILATE
     Indication: PERIPHERAL ARTERY THROMBOSIS
  8. DUSOPHARM [Concomitant]
     Indication: DIABETIC MACROANGIOPATHY
  9. GLUCOPHAGE [Concomitant]
     Active Substance: METFORMIN HYDROCHLORIDE
     Indication: DIABETES MELLITUS
     Dosage: 2000 MG, QD
     Route: 048
     Dates: start: 201705
  10. PACLITAXEL. [Suspect]
     Active Substance: PACLITAXEL
     Indication: OVARIAN CANCER
     Dosage: 350 MG, TIW
     Route: 042
     Dates: start: 20210510, end: 20210510
  11. DUSOPHARM [Concomitant]
     Indication: PERIPHERAL ARTERY THROMBOSIS
     Dosage: 100 MG,QD
     Route: 048
     Dates: start: 20210323
  12. CYCLO 3 FORT [Concomitant]
     Active Substance: ASCORBIC ACID\HESPERIDIN METHYLCHALCONE\RUSCUS ACULEATUS ROOT
     Indication: PERIPHERAL ARTERY THROMBOSIS
     Dosage: 2 DF,QD
     Route: 048
     Dates: start: 20210323
  13. DURVALUMAB. [Suspect]
     Active Substance: DURVALUMAB
     Indication: OVARIAN CANCER
     Dosage: 1120 MG, TIW
     Route: 042
     Dates: start: 20210531
  14. BISOGAMMA [Concomitant]
     Active Substance: BISOPROLOL FUMARATE
     Indication: ATRIAL FIBRILLATION
     Dosage: 5 MG, QD
     Route: 048
     Dates: start: 201604, end: 201910
  15. DOXIUM [Concomitant]
     Active Substance: CALCIUM DOBESILATE
     Indication: DIABETIC MACROANGIOPATHY
     Dosage: 1000 MG,QD
     Route: 048
     Dates: start: 20210323
  16. XARELTO [Concomitant]
     Active Substance: RIVAROXABAN
     Indication: PERIPHERAL ARTERY THROMBOSIS
     Dosage: 20 MG, QD
     Route: 048
     Dates: start: 20210323
  17. CARBOPLATIN. [Suspect]
     Active Substance: CARBOPLATIN
     Dosage: 615 MG, 1 TOTAL
     Route: 042
     Dates: start: 20210510, end: 20210510
  18. BEVACIZUMAB. [Concomitant]
     Active Substance: BEVACIZUMAB
     Indication: OVARIAN CANCER
     Dosage: 1395 MG, 1 TOTAL
     Route: 042
     Dates: start: 20210510
  19. MILURIT [Concomitant]
     Active Substance: ALLOPURINOL
     Indication: HYPERURICAEMIA
     Dosage: 100 ML,QD
     Route: 048
     Dates: start: 20210410
  20. BISOGAMMA [Concomitant]
     Active Substance: BISOPROLOL FUMARATE
     Indication: HYPERTENSION
     Dosage: 10 MG, QD
     Route: 048
     Dates: start: 201910, end: 201910
  21. ZARANTA [Concomitant]
     Active Substance: ROSUVASTATIN CALCIUM
     Indication: HYPERCHOLESTEROLAEMIA
     Dosage: 10 MG, QD
     Route: 048
     Dates: start: 201910
  22. CYCLO 3 FORT [Concomitant]
     Active Substance: ASCORBIC ACID\HESPERIDIN METHYLCHALCONE\RUSCUS ACULEATUS ROOT
     Indication: DIABETIC MACROANGIOPATHY
  23. CARBOPLATIN. [Suspect]
     Active Substance: CARBOPLATIN
     Dosage: 600 MG, 1 TOTAL
     Route: 042
     Dates: start: 20210531
  24. DOXIUM [Concomitant]
     Active Substance: CALCIUM DOBESILATE
     Indication: DEEP VEIN THROMBOSIS
  25. DURVALUMAB. [Suspect]
     Active Substance: DURVALUMAB
     Dosage: 1120 MG, TIW
     Route: 042
     Dates: start: 20210510, end: 20210510
  26. DUSOPHARM [Concomitant]
     Indication: DEEP VEIN THROMBOSIS
  27. JARDIANCE [Concomitant]
     Active Substance: EMPAGLIFLOZIN
     Indication: DIABETES MELLITUS
     Dosage: 10 MG, QD
     Route: 048
     Dates: start: 201705

REACTIONS (2)
  - Blood loss anaemia [Recovered/Resolved]
  - Limb injury [Recovered/Resolved]

NARRATIVE: CASE EVENT DATE: 20210618
